FAERS Safety Report 5040013-2 (Version None)
Quarter: 2006Q2

REPORT INFORMATION
  Report Type: 
  Country: None (occurrence: None)
  Receive Date: 20060601
  Receipt Date: 20060105
  Transmission Date: 20061013
  Serious: No
  Sender: FDA-Public Use
  Company Number: 2006PV006636

PATIENT
  Age: 59 Year
  Sex: Female
  Weight: 74.8435 kg

DRUGS (11)
  1. BYETTA [Suspect]
     Indication: DIABETES MELLITUS NON-INSULIN-DEPENDENT
     Dosage: SEE IMAGE
     Route: 058
     Dates: start: 20051101, end: 20051201
  2. BYETTA [Suspect]
     Indication: DIABETES MELLITUS NON-INSULIN-DEPENDENT
     Dosage: SEE IMAGE
     Route: 058
     Dates: start: 20051201
  3. GLUCOTROL [Concomitant]
  4. GLUCOPHAGE [Concomitant]
  5. ASPIRIN [Concomitant]
  6. CARDIZEM [Concomitant]
  7. DYAZIDE [Concomitant]
  8. DIOVAN [Concomitant]
  9. LIPITOR [Concomitant]
  10. XANAX [Concomitant]
  11. LIPITOR [Concomitant]

REACTIONS (5)
  - DIARRHOEA [None]
  - HIGH DENSITY LIPOPROTEIN DECREASED [None]
  - LOW DENSITY LIPOPROTEIN DECREASED [None]
  - NAUSEA [None]
  - WEIGHT DECREASED [None]
